FAERS Safety Report 4334805-2 (Version None)
Quarter: 2004Q2

REPORT INFORMATION
  Report Type: 
  Country: None (occurrence: None)
  Receive Date: 20040407
  Receipt Date: 20040407
  Transmission Date: 20050107
  Serious: Yes (Other)
  Sender: FDA-Public Use
  Company Number: None

PATIENT
  Sex: Male

DRUGS (14)
  1. ALEMTUZUMAB [Suspect]
     Indication: HODGKIN'S DISEASE
     Dosage: 3 MG IV X 1
     Route: 042
  2. CLOTRIMAZOLE [Concomitant]
  3. ACYCLOVIR [Concomitant]
  4. APAP TAB [Concomitant]
  5. DIPHENHYDRAMINE HCL [Concomitant]
  6. CYCLOSPORINE [Concomitant]
  7. VORICONAZOLE [Concomitant]
  8. FILGRASTIM [Concomitant]
  9. HEPARIN [Concomitant]
  10. NYSTATIN [Concomitant]
  11. CLOTRIMAZOLE [Concomitant]
  12. METHOTREXOLE [Concomitant]
  13. PROCHLORPERAZINE [Concomitant]
  14. LORAZEPAM [Concomitant]

REACTIONS (4)
  - BLOOD PRESSURE DIASTOLIC DECREASED [None]
  - BODY TEMPERATURE INCREASED [None]
  - CHILLS [None]
  - HEART RATE DECREASED [None]
